FAERS Safety Report 14627196 (Version 2)
Quarter: 2018Q1

REPORT INFORMATION
  Report Type: Report from Study
  Country: JP (occurrence: JP)
  Receive Date: 20180312
  Receipt Date: 20180326
  Transmission Date: 20180509
  Serious: Yes (Other)
  Sender: FDA-Public Use
  Company Number: JP-TEVA-2018-JP-866374

PATIENT
  Age: 77 Year
  Sex: Female

DRUGS (4)
  1. METHOTREXATE. [Interacting]
     Active Substance: METHOTREXATE
     Indication: ADULT T-CELL LYMPHOMA/LEUKAEMIA
     Route: 037
  2. SULFAMETHOXAZOLE/TRIMETHOPRIM [Interacting]
     Active Substance: SULFAMETHOXAZOLE\TRIMETHOPRIM
     Indication: ADULT T-CELL LYMPHOMA/LEUKAEMIA
     Dosage: ONE TABLET, ONCE A DAY
     Route: 065
  3. ARA-C [Suspect]
     Active Substance: CYTARABINE
     Indication: ADULT T-CELL LYMPHOMA/LEUKAEMIA
     Route: 037
  4. PREDNISOLONE. [Concomitant]
     Active Substance: PREDNISOLONE
     Indication: ADULT T-CELL LYMPHOMA/LEUKAEMIA
     Route: 037

REACTIONS (6)
  - Thrombocytopenia [Unknown]
  - Stomatitis [Unknown]
  - Anaemia [Unknown]
  - Drug interaction [Unknown]
  - Neutropenia [Unknown]
  - Leukopenia [Recovered/Resolved]
